FAERS Safety Report 8249898-X (Version None)
Quarter: 2012Q2

REPORT INFORMATION
  Report Type: 
  Country: None (occurrence: None)
  Receive Date: 20120402
  Receipt Date: 20120329
  Transmission Date: 20120825
  Serious: Yes (Death)
  Sender: FDA-Public Use
  Company Number: PHEH2012US007040

PATIENT
  Sex: Female

DRUGS (19)
  1. LANTUS [Concomitant]
  2. COUMADIN [Concomitant]
     Dosage: 7.5 MG, QD
  3. LYRICA [Concomitant]
     Dosage: 100 MG, QD
  4. PREDNISONE TAB [Concomitant]
     Dosage: 10 MG, UNK
  5. ATIVAN [Concomitant]
  6. DILAUDID [Concomitant]
     Dosage: 4 MG, UNK
  7. TOBI [Suspect]
     Indication: CYSTIC FIBROSIS
     Dosage: 300 MG, BID, 28 DAYS ON AND 28 DAYS OF
     Dates: start: 20111201
  8. VICODIN ES [Concomitant]
  9. PRILOSEC [Concomitant]
     Dosage: 20 MG, QD
  10. ATROVENT [Concomitant]
  11. COLACE [Concomitant]
     Dosage: 100 MG, BID
  12. ADCIRCA [Concomitant]
     Dosage: 20 MG, BID
  13. HUMALOG [Concomitant]
  14. CALCIUM CARBONATE [Concomitant]
     Dosage: 600 MG, QD
  15. LETAIRIS [Concomitant]
     Dosage: 10 MG, QD
  16. ZOCOR [Concomitant]
     Dosage: 40 MG, QD
  17. LASIX [Concomitant]
     Dosage: 40 MG, QD
  18. ENALAPRIL [Concomitant]
     Dosage: 5 MG, BID
  19. ALBUTEROL [Concomitant]

REACTIONS (1)
  - DEATH [None]
